FAERS Safety Report 7100733 (Version 4)
Quarter: 2012Q4

REPORT INFORMATION
  Report Type: 
  Country: US (occurrence: US)
  Receive Date: 20090829
  Receipt Date: 20121226
  Transmission Date: 20130627
  Serious: Yes (Other)
  Sender: FDA-Public Use
  Company Number: US-ELI_LILLY_AND_COMPANY-US200908005204

PATIENT
  Age: 72 None
  Sex: Male

DRUGS (14)
  1. HUMALOG LISPRO [Suspect]
     Indication: TYPE 1 DIABETES MELLITUS
     Dosage: UNK, UNK
     Dates: start: 20081219
  2. HUMALOG LISPRO [Suspect]
     Dosage: UNK, prn
  3. HUMULIN REGULAR [Suspect]
     Dosage: UNK
  4. HUMULIN NPH [Suspect]
     Indication: TYPE 1 DIABETES MELLITUS
     Dosage: 13 u, each morning
     Dates: start: 1982
  5. HUMULIN NPH [Suspect]
     Dosage: 6 u, each evening
  6. HUMULIN NPH [Suspect]
     Dosage: 13 u, each morning
  7. HUMULIN NPH [Suspect]
     Dosage: 6 u, each evening
  8. INSULIN, PORK [Concomitant]
     Indication: TYPE 1 DIABETES MELLITUS
     Dosage: 30 u, qd
  9. LANTUS [Concomitant]
     Indication: TYPE 1 DIABETES MELLITUS
     Dosage: UNK, each evening
     Dates: start: 20081219
  10. COZAAR [Concomitant]
  11. ZOCOR [Concomitant]
  12. LEVOTHYROXINE [Concomitant]
     Dosage: 100 mg, UNK
  13. VITAMINS [Concomitant]
  14. BABY ASPIRIN [Concomitant]

REACTIONS (19)
  - Deafness unilateral [Recovering/Resolving]
  - Hypoglycaemic coma [Recovered/Resolved]
  - Eye haemorrhage [Not Recovered/Not Resolved]
  - Blood glucose decreased [Not Recovered/Not Resolved]
  - Blood glucose increased [Not Recovered/Not Resolved]
  - Weight increased [Not Recovered/Not Resolved]
  - Central obesity [Not Recovered/Not Resolved]
  - Rash generalised [Not Recovered/Not Resolved]
  - Blister [Not Recovered/Not Resolved]
  - Malaise [Recovered/Resolved]
  - Visual impairment [Not Recovered/Not Resolved]
  - Macular degeneration [Not Recovered/Not Resolved]
  - Lacrimation increased [Unknown]
  - Tinea pedis [Unknown]
  - Headache [Unknown]
  - Viral infection [Unknown]
  - Feeling abnormal [Unknown]
  - Blister [Unknown]
  - Dizziness [Unknown]
